FAERS Safety Report 6919089-0 (Version None)
Quarter: 2010Q3

REPORT INFORMATION
  Report Type: 
  Country: None (occurrence: None)
  Receive Date: 20100811
  Receipt Date: 20100730
  Transmission Date: 20110219
  Serious: Yes (Other)
  Sender: FDA-Public Use
  Company Number: PHHY2010JP12250

PATIENT
  Sex: Male

DRUGS (5)
  1. TASIGNA [Suspect]
     Indication: CHRONIC MYELOID LEUKAEMIA
     Dosage: 400 MG, UNK
     Route: 048
     Dates: start: 20090909, end: 20091020
  2. TASIGNA [Suspect]
     Dosage: 600 MG, UNK
     Route: 048
     Dates: start: 20091021, end: 20100218
  3. TASIGNA [Suspect]
     Dosage: 400 MG, UNK
     Route: 048
     Dates: start: 20100219, end: 20100312
  4. TASIGNA [Suspect]
     Dosage: UNK
     Route: 048
     Dates: start: 20100327, end: 20100409
  5. POSTERISAN [Concomitant]
     Dosage: 2 G, UNK
     Dates: start: 20090909

REACTIONS (3)
  - ANGINA PECTORIS [None]
  - CORONARY ARTERY STENOSIS [None]
  - PERCUTANEOUS CORONARY INTERVENTION [None]
